FAERS Safety Report 6542669-1 (Version None)
Quarter: 2010Q1

REPORT INFORMATION
  Report Type: 
  Country: None (occurrence: None)
  Receive Date: 20100114
  Receipt Date: 20100104
  Transmission Date: 20100710
  Serious: Yes (Death, Hospitalization, Disabling)
  Sender: FDA-Public Use
  Company Number: 230559M09USA

PATIENT
  Age: 62 Year
  Sex: Male
  Weight: 86 kg

DRUGS (13)
  1. REBIF [Suspect]
     Indication: MULTIPLE SCLEROSIS
     Dosage: 44 MCG, 3 IN 1 WEEKS, SUBCUTANEOUS
     Route: 058
     Dates: start: 20080102, end: 20091025
  2. ARICEPT [Concomitant]
  3. AMBIEN CR [Concomitant]
  4. PROVIGIL [Concomitant]
  5. PHENTERMINE [Concomitant]
  6. 4-AMINOPYRIDINE (FAMPRIDINE) [Concomitant]
  7. NITROFURANTOIN [Concomitant]
  8. SOTALOL HCL [Concomitant]
  9. AZATHIOPRINE (AZATIOPRINE) [Concomitant]
  10. FLUOXETINE HCL [Concomitant]
  11. ANDROGEL [Concomitant]
  12. VITAMIN B12 [Concomitant]
  13. ASPIRIN [Concomitant]

REACTIONS (5)
  - ATRIAL FIBRILLATION [None]
  - PNEUMONIA [None]
  - PROGRESSIVE MULTIPLE SCLEROSIS [None]
  - STAPHYLOCOCCAL BACTERAEMIA [None]
  - URINARY TRACT INFECTION [None]
